FAERS Safety Report 4941360-2 (Version None)
Quarter: 2006Q1

REPORT INFORMATION
  Report Type: 
  Country: None (occurrence: None)
  Receive Date: 20060313
  Receipt Date: 20050218
  Transmission Date: 20060701
  Serious: Yes (Hospitalization)
  Sender: FDA-Public Use
  Company Number: US-MERCK-0502USA02723

PATIENT
  Age: 74 Year
  Sex: Female
  Weight: 100 kg

DRUGS (18)
  1. VIOXX [Suspect]
     Indication: ARTHRITIS
     Route: 048
     Dates: start: 20000405
  2. VIOXX [Suspect]
     Route: 048
     Dates: start: 20020101, end: 20030101
  3. TRAZODONE HYDROCHLORIDE [Concomitant]
     Route: 065
  4. HYDROCHLOROTHIAZIDE [Concomitant]
     Route: 048
  5. VITAMINS (UNSPECIFIED) [Concomitant]
     Route: 065
  6. OMEGA-3 MARINE TRIGLYCERIDES [Concomitant]
     Route: 065
  7. GARLIC [Concomitant]
     Route: 065
  8. GINGER [Concomitant]
     Route: 065
  9. CALCIUM (UNSPECIFIED) [Concomitant]
     Route: 065
  10. PREVACID [Concomitant]
     Route: 048
  11. TOPROL-XL [Concomitant]
     Route: 065
  12. NORVASC [Concomitant]
     Route: 065
  13. AVAPRO [Concomitant]
     Route: 065
  14. ZOCOR [Concomitant]
     Route: 048
  15. FOSAMAX ONCE WEEKLY [Concomitant]
     Route: 048
  16. ADALAT CC [Concomitant]
     Route: 065
  17. MAGNESIUM (UNSPECIFIED) [Concomitant]
     Route: 065
  18. ASPIRIN [Concomitant]
     Route: 065

REACTIONS (16)
  - ACUTE CORONARY SYNDROME [None]
  - AORTIC ARTERIOSCLEROSIS [None]
  - ARTHRALGIA [None]
  - CHEST PAIN [None]
  - CORONARY ARTERY DISEASE [None]
  - DIVERTICULUM [None]
  - GASTRITIS [None]
  - HAEMATOCHEZIA [None]
  - HAEMORRHOIDS [None]
  - LIVER FUNCTION TEST ABNORMAL [None]
  - MYOCARDIAL INFARCTION [None]
  - OTITIS MEDIA [None]
  - RENAL ARTERY STENOSIS [None]
  - RENAL CYST [None]
  - SLEEP APNOEA SYNDROME [None]
  - VERTIGO LABYRINTHINE [None]
